FAERS Safety Report 11659384 (Version 1)
Quarter: 2015Q4

REPORT INFORMATION
  Report Type: Spontaneous
  Country: FR (occurrence: FR)
  Receive Date: 20151026
  Receipt Date: 20151026
  Transmission Date: 20160304
  Serious: Yes (Other)
  Sender: FDA-Public Use
  Company Number: FR-009507513-1510FRA010971

PATIENT
  Age: 68 Year
  Sex: Female

DRUGS (15)
  1. GUTRON [Concomitant]
     Active Substance: MIDODRINE
     Dosage: 5 MG EVERY 24 HOURS
     Route: 048
     Dates: start: 20150513
  2. HEPT-A-MYL [Concomitant]
     Active Substance: HEPTAMINOL HYDROCHLORIDE
     Dosage: 1 DF EVERY 8 HOUS
     Route: 048
     Dates: start: 20150513
  3. TRANXENE T-TAB [Concomitant]
     Active Substance: CLORAZEPATE DIPOTASSIUM
     Dosage: 10 MG EVERY 24 HOURS
     Route: 042
     Dates: start: 20150513
  4. ALKERAN [Suspect]
     Active Substance: MELPHALAN
     Indication: AMYLOIDOSIS
     Dosage: 12 MG, QD
     Route: 048
     Dates: start: 20150723, end: 20150725
  5. PRIMPERAN [Concomitant]
     Active Substance: METOCLOPRAMIDE HYDROCHLORIDE
     Dosage: 10 MG EVERY 8 HOURS
     Route: 042
     Dates: start: 20150527
  6. LARGACTIL [Concomitant]
     Active Substance: CHLORPROMAZINE
     Dosage: 15 MG EVERY 8 HOURS
     Route: 042
     Dates: start: 20150527
  7. EMEND [Suspect]
     Active Substance: APREPITANT
     Dosage: 125 MG AT DAY 1
     Route: 048
     Dates: start: 20150723, end: 20150723
  8. LOVENOX [Concomitant]
     Active Substance: ENOXAPARIN SODIUM
     Dosage: 4000 IU EVERY 24 HOURS
     Route: 058
     Dates: start: 20150513
  9. NEODEX (DEXAMETHASONE (+) NEOMYCIN SULFATE (+) POLYMYXIN B SULFATE) [Concomitant]
     Indication: AMYLOIDOSIS
     Dosage: EVERY 24 HOURS
     Route: 048
     Dates: start: 20150723, end: 20150725
  10. EMEND [Suspect]
     Active Substance: APREPITANT
     Dosage: 80 MG AT DAY 2 AND DAY 3
     Dates: start: 20150724, end: 20150725
  11. SMOFKABIVEN [Concomitant]
     Active Substance: UNSPECIFIED INGREDIENT
     Dosage: 1 DF EVERY 24 HOURS
     Route: 042
     Dates: start: 20150709, end: 20150725
  12. ZOPHREN (ONDANSETRON HYDROCHLORIDE) [Concomitant]
     Active Substance: ONDANSETRON HYDROCHLORIDE
     Dosage: 8 MG EVENY 8 HOURS
     Dates: start: 20150527
  13. EUPANTOL [Concomitant]
     Active Substance: PANTOPRAZOLE SODIUM
     Dosage: 40 MG EVERY 24 HOURS
     Route: 042
     Dates: start: 20150513
  14. FLUCORT (FLUMETHASONE) [Concomitant]
     Dosage: 100 MG, QD
     Route: 048
     Dates: start: 20150527
  15. STILNOX [Concomitant]
     Active Substance: ZOLPIDEM TARTRATE
     Dosage: 5 MG EVERY 24 HOURS
     Dates: start: 20150527

REACTIONS (1)
  - Hepatitis [Recovered/Resolved]

NARRATIVE: CASE EVENT DATE: 20150724
